FAERS Safety Report 5373162-X (Version None)
Quarter: 2007Q2

REPORT INFORMATION
  Report Type: 
  Country: None (occurrence: None)
  Receive Date: 20070627
  Receipt Date: 20070618
  Transmission Date: 20071010
  Serious: Yes (Other)
  Sender: FDA-Public Use
  Company Number: US-PFIZER INC-2007051662

PATIENT
  Age: 44 Year
  Sex: Female

DRUGS (2)
  1. NARDIL [Suspect]
  2. LAMOTRIGINE [Suspect]

REACTIONS (2)
  - MEMORY IMPAIRMENT [None]
  - MENTAL DISORDER [None]
